FAERS Safety Report 12068356 (Version 1)
Quarter: 2016Q1

REPORT INFORMATION
  Report Type: Spontaneous
  Country: US (occurrence: US)
  Receive Date: 20160211
  Receipt Date: 20160211
  Transmission Date: 20160526
  Serious: No
  Sender: FDA-Public Use
  Company Number: US-SMITH AND NEPHEW, INC-2015SMT00552

PATIENT
  Age: 76 Year
  Sex: Male
  Weight: 97.96 kg

DRUGS (12)
  1. SOTALOL. [Concomitant]
     Active Substance: SOTALOL
  2. XARELTO [Concomitant]
     Active Substance: RIVAROXABAN
  3. RED YEAST RICE [Concomitant]
     Active Substance: DIETARY SUPPLEMENT
  4. REGRANEX [Suspect]
     Active Substance: BECAPLERMIN
     Indication: DIABETIC FOOT
     Dosage: UNK, 1X/DAY
     Route: 061
     Dates: start: 20151022
  5. PLAVIX [Concomitant]
     Active Substance: CLOPIDOGREL BISULFATE
  6. METFORMIN [Concomitant]
     Active Substance: METFORMIN HYDROCHLORIDE
  7. FISH OIL [Concomitant]
     Active Substance: FISH OIL
  8. HYTRIN [Concomitant]
     Active Substance: TERAZOSIN HYDROCHLORIDE
  9. LIPITOR [Concomitant]
     Active Substance: ATORVASTATIN CALCIUM
  10. COQ10 [Concomitant]
     Active Substance: UBIDECARENONE
  11. MULTIVITAMIN [Concomitant]
     Active Substance: VITAMINS
  12. LISINOPRIL. [Concomitant]
     Active Substance: LISINOPRIL

REACTIONS (5)
  - Application site haemorrhage [Recovered/Resolved]
  - Application site pain [Not Recovered/Not Resolved]
  - Wound complication [Unknown]
  - Purulent discharge [Recovered/Resolved]
  - Application site discolouration [Unknown]

NARRATIVE: CASE EVENT DATE: 2015
